FAERS Safety Report 15494202 (Version 5)
Quarter: 2019Q1

REPORT INFORMATION
  Report Type: Report from Study
  Country: DE (occurrence: DE)
  Receive Date: 20181012
  Receipt Date: 20190306
  Transmission Date: 20190417
  Serious: Yes (Hospitalization)
  Sender: FDA-Public Use
  Company Number: DE-PFIZER INC-2017527978

PATIENT
  Age: 78 Year
  Sex: Male
  Weight: 84 kg

DRUGS (38)
  1. ABSTRAL [Concomitant]
     Active Substance: FENTANYL CITRATE
     Indication: PAIN
     Dosage: 800 UG, AS NEEDED (PRN UP TO 4/DAY)
     Route: 060
  2. ABSTRAL [Concomitant]
     Active Substance: FENTANYL CITRATE
     Dosage: 4000 UG, 1X/DAY
     Route: 060
  3. NACL [Concomitant]
     Active Substance: SODIUM CHLORIDE
     Dosage: 500 UNK, UNK
     Route: 065
     Dates: start: 20170418, end: 20170418
  4. PALLADON [Concomitant]
     Active Substance: HYDROMORPHONE
     Indication: PAIN
     Dosage: REDUCED FROM 2X24 MG
     Route: 048
     Dates: start: 20170214
  5. PALLADON [Concomitant]
     Active Substance: HYDROMORPHONE
     Dosage: 3 MG, 1X/DAY
     Route: 048
  6. ABSTRAL [Concomitant]
     Active Substance: FENTANYL CITRATE
     Dosage: 800 UG, UNK
     Route: 048
  7. DOMPERIDONE [Concomitant]
     Active Substance: DOMPERIDONE
     Dosage: 30 MG, 1X/DAY
     Route: 048
  8. PRAMIPEXOL [Concomitant]
     Active Substance: PRAMIPEXOLE
     Dosage: 1.57 MG, 1X/DAY
     Route: 048
  9. METOCLOPRAMIDE. [Concomitant]
     Active Substance: METOCLOPRAMIDE
     Indication: NAUSEA
     Dosage: 30 MG, 1X/DAY
     Route: 048
     Dates: start: 20170404, end: 20170418
  10. VOMEX A [Concomitant]
     Active Substance: DIMENHYDRINATE
     Indication: NAUSEA
     Dosage: 150 MG, AS NEEDED (2-3 DAILY)
     Route: 048
  11. MCP [Concomitant]
     Active Substance: METOCLOPRAMIDE HYDROCHLORIDE
     Dosage: 30 UNK, UNK
     Route: 048
     Dates: start: 20170404, end: 20170404
  12. NACL [Concomitant]
     Active Substance: SODIUM CHLORIDE
     Dosage: 500 UNK, UNK
     Route: 065
     Dates: start: 20170411, end: 20170411
  13. NACL [Concomitant]
     Active Substance: SODIUM CHLORIDE
     Dosage: 500 UNK, UNK
     Route: 065
     Dates: start: 20170404, end: 20170404
  14. PANTOPRAZOLE [Concomitant]
     Active Substance: PANTOPRAZOLE
     Dosage: 40 MG, 1X/DAY
     Route: 048
  15. ZOFRAN [Concomitant]
     Active Substance: ONDANSETRON HYDROCHLORIDE
     Dosage: 16 MG, 1X/DAY
     Route: 041
  16. ZOFRAN [Concomitant]
     Active Substance: ONDANSETRON HYDROCHLORIDE
     Dosage: 16 MG, 1X/DAY
     Route: 048
  17. NACL [Concomitant]
     Active Substance: SODIUM CHLORIDE
     Dosage: 500 ML, UNK
     Route: 041
  18. PALLADON [Concomitant]
     Active Substance: HYDROMORPHONE
     Dosage: 40 MG, 1X/DAY
     Route: 048
  19. ONDANSETRON [Concomitant]
     Active Substance: ONDANSETRON
     Dosage: 8 MG, UNK
     Route: 041
  20. CLOPIDOGREL [Concomitant]
     Active Substance: CLOPIDOGREL BISULFATE
     Dosage: 75 MG, 1X/DAY
     Route: 048
  21. NOVALGIN /00169801/ [Concomitant]
     Active Substance: ACETAMINOPHEN\CAFFEINE\PROPYPHENAZONE
     Dosage: 4000 MG, 1X/DAY
     Route: 048
  22. SIFROL [Concomitant]
     Active Substance: PRAMIPEXOLE
     Dosage: 1.57 MG, 1X/DAY
     Route: 048
  23. MCP [Concomitant]
     Active Substance: METOCLOPRAMIDE HYDROCHLORIDE
     Dosage: 30 UNK, UNK
     Route: 048
     Dates: start: 20170418, end: 20170418
  24. GEMCITABINE HYDROCHLORIDE. [Suspect]
     Active Substance: GEMCITABINE HYDROCHLORIDE
     Indication: PANCREATIC CARCINOMA METASTATIC
     Dosage: 1000 MG/M2, UNK
     Route: 041
     Dates: start: 20170404, end: 20170418
  25. ABRAXANE [Suspect]
     Active Substance: PACLITAXEL
     Dosage: 125 MG/M2, UNK
     Route: 041
     Dates: start: 20170307, end: 20170612
  26. ZOFRAN [Concomitant]
     Active Substance: ONDANSETRON HYDROCHLORIDE
     Dosage: 8 MG, UNK
     Route: 048
     Dates: start: 20170404, end: 20170418
  27. HALOPERIDOL. [Concomitant]
     Active Substance: HALOPERIDOL
     Indication: CONSTIPATION
     Dosage: 15 MG, 1X/DAY
     Route: 048
  28. PANTOPRAZOLE [Concomitant]
     Active Substance: PANTOPRAZOLE
     Indication: CONSTIPATION
     Dosage: 80 MG, 1X/DAY
     Route: 048
  29. NOVALGIN /00169801/ [Concomitant]
     Active Substance: ACETAMINOPHEN\CAFFEINE\PROPYPHENAZONE
     Dosage: 120 GTT, UNK
     Route: 048
  30. ZOPICLON [Concomitant]
     Active Substance: ZOPICLONE
     Indication: CONSTIPATION
     Dosage: 7.5 MG, 1X/DAY
     Route: 048
  31. ABRAXANE [Suspect]
     Active Substance: PACLITAXEL
     Indication: PANCREATIC CARCINOMA METASTATIC
     Dosage: 125 MG/M2, UNK
     Route: 041
     Dates: start: 20170307, end: 20170418
  32. MOVICOL [Concomitant]
     Active Substance: POLYETHYLENE GLYCOL 3350\POTASSIUM CHLORIDE\SODIUM BICARBONATE\SODIUM CHLORIDE
     Indication: CONSTIPATION
     Dosage: 7.5 MG, 1X/DAY
     Route: 048
  33. ZOFRAN [Concomitant]
     Active Substance: ONDANSETRON HYDROCHLORIDE
     Indication: NAUSEA
     Dosage: 8 MG, UNK
     Route: 041
  34. PALLADON [Concomitant]
     Active Substance: HYDROMORPHONE
     Dosage: 2 IN THE MORNING 1 IN THE AFTERNOON AND 2.4 IN THE EVENING
     Route: 048
  35. MCP [Concomitant]
     Active Substance: METOCLOPRAMIDE HYDROCHLORIDE
     Indication: NAUSEA
     Dosage: 30 MG, 1X/DAY
     Route: 048
     Dates: start: 20170411, end: 20170411
  36. HALOPERIDOL. [Concomitant]
     Active Substance: HALOPERIDOL
     Dosage: UNK, 2X/DAY
     Route: 048
  37. PRAMIPEXOL [Concomitant]
     Active Substance: PRAMIPEXOLE
     Dosage: REDUCED FROM 2XDAILY
     Route: 048
     Dates: start: 20170413
  38. CLOPIDOGREL [Concomitant]
     Active Substance: CLOPIDOGREL BISULFATE
     Dosage: 76 UNK, UNK
     Route: 048

REACTIONS (10)
  - Abdominal pain [Recovered/Resolved]
  - Abdominal pain [Recovered/Resolved]
  - Infection [Recovered/Resolved]
  - Thrombocytopenia [Recovered/Resolved]
  - Leukopenia [Recovered/Resolved]
  - Neutropenia [Recovered/Resolved]
  - Device related infection [Recovered/Resolved]
  - C-reactive protein increased [Not Recovered/Not Resolved]
  - Infection [Recovered/Resolved]
  - Neutropenia [Recovered/Resolved]

NARRATIVE: CASE EVENT DATE: 201703
